FAERS Safety Report 7325044-1 (Version None)
Quarter: 2011Q1

REPORT INFORMATION
  Report Type: 
  Country: None (occurrence: None)
  Receive Date: 20110302
  Receipt Date: 20110223
  Transmission Date: 20110831
  Serious: Yes (Hospitalization, Other)
  Sender: FDA-Public Use
  Company Number: US-ASTRAZENECA-2007UW02356

PATIENT
  Age: 599 Month
  Sex: Male
  Weight: 106.6 kg

DRUGS (43)
  1. SEROQUEL [Suspect]
     Indication: NIGHTMARE
     Route: 048
     Dates: start: 20030317, end: 20040903
  2. LISINOPRIL [Concomitant]
     Indication: BLOOD PRESSURE
     Dosage: 20 MG, ONE HALF TABLET BY MOUTH TWICE A DAY
     Dates: start: 20080901
  3. SEROQUEL [Suspect]
     Indication: POST-TRAUMATIC STRESS DISORDER
     Route: 048
     Dates: start: 20030317, end: 20040903
  4. SEROQUEL [Suspect]
     Route: 048
     Dates: start: 20040101, end: 20060301
  5. SEROQUEL [Suspect]
     Route: 048
     Dates: start: 20060327, end: 20060629
  6. SEROQUEL [Suspect]
     Route: 048
     Dates: start: 20080901
  7. SEROQUEL [Suspect]
     Route: 048
     Dates: start: 20080901
  8. AMOXICILLIN [Concomitant]
     Indication: INFECTION
     Dosage: 500 MG TAKE FOUR CAPSULES BY MOUTH ONE TIME
     Dates: start: 20080901
  9. RELAFEN [Concomitant]
     Indication: ARTHRALGIA
     Dosage: 500 MG, ONE AND ONE-HALF TABLETS BY MOUTH TWICE A DAY
     Dates: start: 20080901
  10. OMEPRAZOLE [Concomitant]
     Indication: GASTROOESOPHAGEAL REFLUX DISEASE
     Dosage: 20 MG, TWO CAPSULES BY MOUTH ONCE A DAY
     Dates: start: 20080901
  11. SEROQUEL [Suspect]
     Dosage: 100-300 MG
     Route: 048
     Dates: start: 20030317
  12. SEROQUEL [Suspect]
     Route: 048
     Dates: start: 20040101, end: 20060301
  13. SEROQUEL [Suspect]
     Route: 048
     Dates: start: 20040101, end: 20060301
  14. OMEPRAZOLE [Concomitant]
     Indication: ULCER
     Dosage: 20 MG, TWO CAPSULES BY MOUTH ONCE A DAY
     Dates: start: 20080901
  15. SEROQUEL [Suspect]
     Dosage: 100-300 MG
     Route: 048
     Dates: start: 20030317
  16. SEROQUEL [Suspect]
     Route: 048
     Dates: start: 20040101, end: 20060301
  17. SEROQUEL [Suspect]
     Route: 048
     Dates: start: 20040101, end: 20060301
  18. SEROQUEL [Suspect]
     Route: 048
     Dates: start: 20060327, end: 20060629
  19. SEROQUEL [Suspect]
     Route: 048
     Dates: start: 20060327, end: 20060629
  20. SEROQUEL [Suspect]
     Route: 048
     Dates: start: 20060327, end: 20060629
  21. SEROQUEL [Suspect]
     Route: 048
     Dates: start: 20080901
  22. OMEPRAZOLE [Concomitant]
     Indication: HYPERCHLORHYDRIA
     Dosage: 20 MG, TWO CAPSULES BY MOUTH ONCE A DAY
     Dates: start: 20080901
  23. SEROQUEL [Suspect]
     Route: 048
     Dates: start: 20060327, end: 20060629
  24. SEROQUEL [Suspect]
     Route: 048
     Dates: start: 20080901
  25. CITALOPRAM HYDROBROMIDE [Concomitant]
     Indication: ANXIETY
     Dosage: 40 MG, TAKE ONE HALF TABLET BY MOUTH EVERY MORNING FOR 14 DAYS, THEN TAKE ONE TABLET ONCE A DAY
     Dates: start: 20080901
  26. SEROQUEL [Suspect]
     Indication: HALLUCINATION
     Route: 048
     Dates: start: 20030317, end: 20040903
  27. SEROQUEL [Suspect]
     Indication: DEPRESSION
     Route: 048
     Dates: start: 20030317, end: 20040903
  28. SEROQUEL [Suspect]
     Indication: FLASHBACK
     Route: 048
     Dates: start: 20030317, end: 20040903
  29. SEROQUEL [Suspect]
     Route: 048
     Dates: start: 20080901
  30. AMLODIPINE [Concomitant]
     Indication: BLOOD PRESSURE
     Dates: start: 20080901
  31. ATENOLOL [Concomitant]
     Indication: BLOOD PRESSURE
     Dosage: 50 MG ONE HALF TABLET BY MOUTH ONCE A DAY
  32. CITALOPRAM HYDROBROMIDE [Concomitant]
     Indication: DEPRESSION
     Dosage: 40 MG, TAKE ONE HALF TABLET BY MOUTH EVERY MORNING FOR 14 DAYS, THEN TAKE ONE TABLET ONCE A DAY
     Dates: start: 20080901
  33. PLAVIX [Concomitant]
     Indication: POOR PERIPHERAL CIRCULATION
     Dates: start: 20080901
  34. NAPROSYN [Concomitant]
     Indication: ARTHRALGIA
  35. SEROQUEL [Suspect]
     Dosage: 100-300 MG
     Route: 048
     Dates: start: 20030317
  36. SEROQUEL [Suspect]
     Dosage: 100-300 MG
     Route: 048
     Dates: start: 20030317
  37. SEROQUEL [Suspect]
     Route: 048
     Dates: start: 20060327, end: 20060629
  38. SEROQUEL [Suspect]
     Route: 048
     Dates: start: 20080901
  39. IBUPROFEN [Concomitant]
     Indication: PAIN
     Dosage: 800 MG, ONE TABLET BY MOUTH EVERY 8 HOURS
     Dates: start: 20080901
  40. SEROQUEL [Suspect]
     Indication: SLEEP DISORDER
     Route: 048
     Dates: start: 20030317, end: 20040903
  41. SEROQUEL [Suspect]
     Dosage: 100-300 MG
     Route: 048
     Dates: start: 20030317
  42. SEROQUEL [Suspect]
     Dosage: 100-300 MG
     Route: 048
     Dates: start: 20030317
  43. SEROQUEL [Suspect]
     Route: 048
     Dates: start: 20040101, end: 20060301

REACTIONS (29)
  - POOR QUALITY SLEEP [None]
  - TYPE 2 DIABETES MELLITUS [None]
  - CHEST PAIN [None]
  - ANXIETY [None]
  - CORONARY ARTERY DISEASE [None]
  - HYPOAESTHESIA [None]
  - ERECTILE DYSFUNCTION [None]
  - OSTEOARTHRITIS [None]
  - VISION BLURRED [None]
  - OVERDOSE [None]
  - PAIN IN EXTREMITY [None]
  - HYPERLIPIDAEMIA [None]
  - PAIN [None]
  - JOINT INJURY [None]
  - KNEE DEFORMITY [None]
  - MYOCARDIAL INFARCTION [None]
  - WEIGHT INCREASED [None]
  - CARDIAC DISORDER [None]
  - TYPE 1 DIABETES MELLITUS [None]
  - DRUG ABUSE [None]
  - BLOOD CHOLESTEROL INCREASED [None]
  - LACERATION [None]
  - TOBACCO ABUSE [None]
  - MUSCULAR WEAKNESS [None]
  - ARTHRALGIA [None]
  - DELIRIUM [None]
  - BACK PAIN [None]
  - VISUAL ACUITY REDUCED [None]
  - MUSCLE SPASMS [None]
